FAERS Safety Report 20715143 (Version 1)
Quarter: 2022Q2

REPORT INFORMATION
  Report Type: Spontaneous
  Country: AU (occurrence: AU)
  Receive Date: 20220415
  Receipt Date: 20220415
  Transmission Date: 20220721
  Serious: Yes (Death)
  Sender: FDA-Public Use
  Company Number: AU-PFIZER INC-06H-008-0307241-00

PATIENT
  Age: 31 Year
  Sex: Male
  Weight: 75 kg

DRUGS (12)
  1. PROPOFOL [Suspect]
     Active Substance: PROPOFOL
     Indication: Sedation
     Dosage: DAY 1
  2. PROPOFOL [Suspect]
     Active Substance: PROPOFOL
     Dosage: DAY 2
  3. PROPOFOL [Suspect]
     Active Substance: PROPOFOL
     Dosage: DAY 3
  4. PROPOFOL [Suspect]
     Active Substance: PROPOFOL
     Dosage: DAY 4
  5. PROPOFOL [Suspect]
     Active Substance: PROPOFOL
     Dosage: DAY 5
  6. PROPOFOL [Suspect]
     Active Substance: PROPOFOL
     Dosage: DAY 6
  7. PROPOFOL [Suspect]
     Active Substance: PROPOFOL
     Dosage: DAY 7
  8. PROPOFOL [Suspect]
     Active Substance: PROPOFOL
     Dosage: DAY 8
  9. ACYCLOVIR [Concomitant]
     Active Substance: ACYCLOVIR
     Indication: Intracranial pressure increased
     Dosage: UNKNOWN, FREQ: UNKNOWN
     Route: 065
  10. ACYCLOVIR [Concomitant]
     Active Substance: ACYCLOVIR
     Indication: Myocarditis
  11. MIDAZOLAM [Concomitant]
     Active Substance: MIDAZOLAM
     Indication: Sedative therapy
     Dosage: UNKNOWN, FREQ: 3 DOSES
     Route: 042
  12. MORPHINE [Concomitant]
     Active Substance: MORPHINE
     Indication: Sedative therapy
     Dosage: UNKNOWN, FREQ: UNKNOWN
     Route: 042

REACTIONS (1)
  - Propofol infusion syndrome [Fatal]
